FAERS Safety Report 10897342 (Version 1)
Quarter: 2015Q1

REPORT INFORMATION
  Report Type: Spontaneous
  Country: US (occurrence: None)
  Receive Date: 20150302
  Receipt Date: 20150302
  Transmission Date: 20150721
  Serious: Yes (Other)
  Sender: FDA-Public Use
  Company Number: None

PATIENT
  Age: 69 Year
  Sex: Female
  Weight: 58.06 kg

DRUGS (8)
  1. LEVOTHYROXINE [Concomitant]
     Active Substance: LEVOTHYROXINE
  2. COLACE [Concomitant]
     Active Substance: DOCUSATE SODIUM
  3. DIPRIVAN [Suspect]
     Active Substance: PROPOFOL
     Indication: COLONOSCOPY
     Route: 042
     Dates: start: 20150225
  4. LIPITOR [Concomitant]
     Active Substance: ATORVASTATIN CALCIUM
  5. MULTI VITAMIN W/BIOTIN [Concomitant]
  6. COQ10 [Concomitant]
     Active Substance: UBIDECARENONE
  7. DIPRIVAN [Suspect]
     Active Substance: PROPOFOL
     Indication: BLOOD PRESSURE DECREASED
     Route: 042
     Dates: start: 20150225
  8. MELATONIN [Concomitant]
     Active Substance: MELATONIN

REACTIONS (4)
  - Sneezing [None]
  - Rhinorrhoea [None]
  - Insomnia [None]
  - Headache [None]

NARRATIVE: CASE EVENT DATE: 20150225
